FAERS Safety Report 15687810 (Version 1)
Quarter: 2018Q4

REPORT INFORMATION
  Report Type: Spontaneous
  Country: US (occurrence: US)
  Receive Date: 20181205
  Receipt Date: 20181205
  Transmission Date: 20190205
  Serious: No
  Sender: FDA-Public Use
  Company Number: US-ROCHE-2135801

PATIENT
  Sex: Male

DRUGS (2)
  1. ACTIVASE [Suspect]
     Active Substance: ALTEPLASE
     Indication: ISCHAEMIC STROKE
     Route: 065
     Dates: start: 20180605, end: 20180605
  2. WARFARIN [Concomitant]
     Active Substance: WARFARIN
     Dosage: ONGOING: UNKNOWN
     Route: 065

REACTIONS (1)
  - International normalised ratio increased [Not Recovered/Not Resolved]
